FAERS Safety Report 20239058 (Version 4)
Quarter: 2022Q1

REPORT INFORMATION
  Report Type: Report from Study
  Country: BE (occurrence: BE)
  Receive Date: 20211228
  Receipt Date: 20220215
  Transmission Date: 20220423
  Serious: Yes (Death, Life-Threatening, Hospitalization)
  Sender: FDA-Public Use
  Company Number: BE-CELGENE-BEL-20211208297

PATIENT
  Age: 68 Year
  Sex: Female

DRUGS (19)
  1. CYTARABINE [Suspect]
     Active Substance: CYTARABINE
     Indication: Acute myeloid leukaemia
     Dosage: 340 MILLIGRAM
     Route: 065
     Dates: start: 20211125, end: 20211201
  2. DAUNORUBICIN [Suspect]
     Active Substance: DAUNORUBICIN
     Indication: Acute myeloid leukaemia
     Dosage: 102 MILLIGRAM
     Route: 065
     Dates: start: 20211125, end: 20211127
  3. Dexeryl [Concomitant]
     Indication: Product used for unknown indication
     Route: 065
     Dates: start: 20211203
  4. LEVOTHYROXINE [Concomitant]
     Active Substance: LEVOTHYROXINE
     Indication: Product used for unknown indication
     Route: 065
     Dates: start: 20181024
  5. OMEPRAZOLE [Concomitant]
     Active Substance: OMEPRAZOLE
     Indication: Product used for unknown indication
     Route: 065
     Dates: start: 20211125
  6. PRUCALOPRIDE SUCCINATE [Concomitant]
     Active Substance: PRUCALOPRIDE SUCCINATE
     Indication: Product used for unknown indication
     Route: 065
     Dates: start: 20211224
  7. SPIRONOLACTONE [Concomitant]
     Active Substance: SPIRONOLACTONE
     Indication: Product used for unknown indication
     Route: 065
     Dates: start: 20211221
  8. TREHALOSE [Concomitant]
     Active Substance: TREHALOSE
     Indication: Product used for unknown indication
     Route: 065
     Dates: start: 20211130
  9. VITAPANTOL [Concomitant]
     Indication: Product used for unknown indication
     Route: 065
     Dates: start: 20211130
  10. TRANEXAMIC ACID [Concomitant]
     Active Substance: TRANEXAMIC ACID
     Indication: Product used for unknown indication
     Route: 065
     Dates: start: 20211216
  11. POTASSIUM CHLORIDE [Concomitant]
     Active Substance: POTASSIUM CHLORIDE
     Indication: Product used for unknown indication
     Route: 065
     Dates: start: 20211204
  12. PRIMPERAN [Concomitant]
     Active Substance: METOCLOPRAMIDE HYDROCHLORIDE
     Indication: Product used for unknown indication
     Route: 065
     Dates: start: 20211224
  13. TPN smofkabiven [Concomitant]
     Indication: Product used for unknown indication
     Route: 065
     Dates: start: 20211216
  14. ZOVIRAX [Concomitant]
     Active Substance: ACYCLOVIR
     Indication: Product used for unknown indication
     Route: 065
     Dates: start: 20211224
  15. PIPERACILLIN SODIUM\TAZOBACTAM SODIUM [Concomitant]
     Active Substance: PIPERACILLIN SODIUM\TAZOBACTAM SODIUM
     Indication: Product used for unknown indication
     Route: 065
     Dates: start: 20211216
  16. VANCOMYCIN [Concomitant]
     Active Substance: VANCOMYCIN
     Indication: Product used for unknown indication
     Route: 065
     Dates: start: 20211218
  17. LINEZOLID [Concomitant]
     Active Substance: LINEZOLID
     Indication: Product used for unknown indication
     Route: 065
  18. FLAGYL [Concomitant]
     Active Substance: METRONIDAZOLE\METRONIDAZOLE HYDROCHLORIDE
     Indication: Product used for unknown indication
     Route: 065
  19. ENASIDENIB [Suspect]
     Active Substance: ENASIDENIB
     Indication: Acute myeloid leukaemia
     Dosage: 100 MILLIGRAM
     Route: 048
     Dates: start: 20211125, end: 20211214

REACTIONS (2)
  - Enterococcal sepsis [Recovered/Resolved]
  - Aspergillus infection [Fatal]

NARRATIVE: CASE EVENT DATE: 20211217
